FAERS Safety Report 6667609-6 (Version None)
Quarter: 2010Q2

REPORT INFORMATION
  Report Type: 
  Country: None (occurrence: None)
  Receive Date: 20100405
  Receipt Date: 20100329
  Transmission Date: 20101027
  Serious: Yes (Death, Life-Threatening, Hospitalization, Other)
  Sender: FDA-Public Use
  Company Number: US-ELI_LILLY_AND_COMPANY-US201002004372

PATIENT
  Age: 61 Year
  Sex: Male

DRUGS (3)
  1. ZYPREXA [Suspect]
  2. LEXAPRO [Concomitant]
  3. ILOPERIDONE [Concomitant]
     Dosage: 1 MG, 2/D

REACTIONS (5)
  - BRAIN DEATH [None]
  - COMA [None]
  - HERPES ZOSTER [None]
  - TACHYCARDIA [None]
  - WEIGHT INCREASED [None]
